FAERS Safety Report 22652675 (Version 1)
Quarter: 2023Q2

REPORT INFORMATION
  Report Type: Other
  Country: FR (occurrence: FR)
  Receive Date: 20230629
  Receipt Date: 20230629
  Transmission Date: 20230722
  Serious: Yes (Other)
  Sender: FDA-Public Use
  Company Number: None

PATIENT
  Age: 73 Year
  Sex: Male
  Weight: 98 kg

DRUGS (4)
  1. ELIGARD [Suspect]
     Active Substance: LEUPROLIDE ACETATE
     Indication: Prostatic specific antigen increased
     Dosage: 45 MILLIGRAM
     Route: 058
     Dates: start: 20220315, end: 20230315
  2. ELIGARD [Suspect]
     Active Substance: LEUPROLIDE ACETATE
     Indication: Prostatic specific antigen increased
     Dosage: UNK
  3. VERAPAMIL BIOGARAN L.P. [Concomitant]
     Indication: Product used for unknown indication
     Dosage: 240 MILLIGRAM
  4. IRBESARTAN [Concomitant]
     Active Substance: IRBESARTAN
     Indication: Product used for unknown indication
     Dosage: 150 MILLIGRAM

REACTIONS (5)
  - Cerebrovascular accident [Not Recovered/Not Resolved]
  - Visual impairment [Not Recovered/Not Resolved]
  - Visual field defect [Not Recovered/Not Resolved]
  - Glare [Not Recovered/Not Resolved]
  - Off label use [Unknown]

NARRATIVE: CASE EVENT DATE: 20220315
